FAERS Safety Report 12645614 (Version 1)
Quarter: 2016Q3

REPORT INFORMATION
  Report Type: Spontaneous
  Country: US (occurrence: US)
  Receive Date: 20160811
  Receipt Date: 20160811
  Transmission Date: 20161109
  Serious: Yes (Other)
  Sender: FDA-Public Use
  Company Number: US-ELI_LILLY_AND_COMPANY-US201608003844

PATIENT
  Sex: Female

DRUGS (2)
  1. HUMULIN R [Suspect]
     Active Substance: INSULIN HUMAN
     Dosage: 37 U, EACH EVENING
     Route: 065
     Dates: start: 2011, end: 20160801
  2. HUMULIN R [Suspect]
     Active Substance: INSULIN HUMAN
     Indication: TYPE 2 DIABETES MELLITUS
     Dosage: 37 U, EACH MORNING
     Route: 065
     Dates: start: 2011, end: 20160801

REACTIONS (3)
  - Cataract [Unknown]
  - Blood glucose decreased [Unknown]
  - Diabetic retinopathy [Unknown]
